FAERS Safety Report 4832124-9 (Version None)
Quarter: 2005Q4

REPORT INFORMATION
  Report Type: 
  Country: None (occurrence: None)
  Receive Date: 20051118
  Receipt Date: 20050929
  Transmission Date: 20060501
  Serious: Yes (Hospitalization)
  Sender: FDA-Public Use
  Company Number: US-MERCK-0510USA00355

PATIENT
  Age: 49 Year
  Sex: Male
  Weight: 100 kg

DRUGS (35)
  1. VIOXX [Suspect]
     Indication: ARTHRALGIA
     Route: 048
     Dates: start: 20001201, end: 20040701
  2. VIOXX [Suspect]
     Route: 048
  3. ALTACE [Concomitant]
     Route: 065
  4. AMOXICILLIN [Concomitant]
     Route: 065
  5. TYLENOL W/ CODEINE [Concomitant]
     Route: 065
  6. ASPIRIN [Concomitant]
     Route: 065
  7. ASPIRIN [Concomitant]
     Route: 065
  8. AXID [Concomitant]
     Route: 065
  9. BAYCOL [Concomitant]
     Route: 065
  10. CEPHALEXIN [Concomitant]
     Route: 065
  11. CORDRAN [Concomitant]
     Route: 065
  12. ZOCOR [Concomitant]
     Route: 065
  13. CYCLOBENZAPRINE HYDROCHLORIDE [Concomitant]
     Route: 065
  14. DELTASONE [Concomitant]
     Route: 065
  15. DENAVIR [Concomitant]
     Route: 065
  16. ELOCON [Concomitant]
     Route: 065
  17. ERYTHROMYCIN [Concomitant]
     Route: 065
  18. FLUOCINONIDE [Concomitant]
     Route: 065
  19. ACETAMINOPHEN AND HYDROCODONE BITARTRATE [Concomitant]
     Route: 065
  20. HYDROXYZINE HYDROCHLORIDE [Concomitant]
     Route: 065
  21. LIPITOR [Concomitant]
     Route: 065
  22. LOPRESSOR [Concomitant]
     Route: 065
  23. MEDROL [Concomitant]
     Route: 065
  24. NAFTIN [Concomitant]
     Route: 065
  25. NAPROSYN [Concomitant]
     Route: 065
  26. NIZORAL [Concomitant]
     Route: 065
  27. PEPCID [Concomitant]
     Route: 065
  28. PERCOCET [Concomitant]
     Route: 065
  29. PRAVACHOL [Concomitant]
     Route: 065
  30. RELAFEN [Concomitant]
     Route: 065
  31. TAZTIA XT [Concomitant]
     Route: 065
  32. TOPICORT [Concomitant]
     Route: 065
  33. ZETIA [Concomitant]
     Route: 065
  34. ZITHROMAX [Concomitant]
     Route: 065
  35. [THERAPY UNSPECIFIED] [Concomitant]
     Route: 065

REACTIONS (5)
  - ANGINA UNSTABLE [None]
  - BACK PAIN [None]
  - CARDIAC DISORDER [None]
  - CHEST PAIN [None]
  - MYOCARDIAL INFARCTION [None]
